FAERS Safety Report 24222699 (Version 1)
Quarter: 2024Q3

REPORT INFORMATION
  Report Type: Spontaneous
  Country: US (occurrence: None)
  Receive Date: 20240816
  Receipt Date: 20240816
  Transmission Date: 20241017
  Serious: Yes (Other)
  Sender: Public
  Company Number: None

PATIENT
  Age: 41 Year
  Sex: Female
  Weight: 61.23 kg

DRUGS (1)
  1. NEXPLANON [Suspect]
     Active Substance: ETONOGESTREL

REACTIONS (6)
  - Emotional distress [None]
  - Pregnancy with implant contraceptive [None]
  - Twin pregnancy [None]
  - Uterine haemorrhage [None]
  - Imminent abortion [None]
  - Foetal death [None]

NARRATIVE: CASE EVENT DATE: 20240802
